FAERS Safety Report 18975473 (Version 1)
Quarter: 2021Q1

REPORT INFORMATION
  Report Type: Spontaneous
  Country: CA (occurrence: CA)
  Receive Date: 20210305
  Receipt Date: 20210305
  Transmission Date: 20210420
  Serious: Yes (Other)
  Sender: FDA-Public Use
  Company Number: CA-PFIZER INC-2021222913

PATIENT
  Sex: Female

DRUGS (4)
  1. BOSULIF [Suspect]
     Active Substance: BOSUTINIB MONOHYDRATE
     Dosage: 40 MG
     Route: 065
  2. BOSULIF [Suspect]
     Active Substance: BOSUTINIB MONOHYDRATE
     Indication: CHRONIC MYELOID LEUKAEMIA
     Dosage: 300 MG
     Route: 065
  3. IMATINIB. [Suspect]
     Active Substance: IMATINIB MESYLATE
     Route: 065
  4. DASATINIB. [Suspect]
     Active Substance: DASATINIB
     Route: 065

REACTIONS (2)
  - Drug intolerance [Unknown]
  - Neoplasm progression [Unknown]
